FAERS Safety Report 7301671-2 (Version None)
Quarter: 2011Q1

REPORT INFORMATION
  Report Type: 
  Country: None (occurrence: None)
  Receive Date: 20110218
  Receipt Date: 20110217
  Transmission Date: 20110831
  Serious: Yes (Hospitalization, Other)
  Sender: FDA-Public Use
  Company Number: US-AMGEN-USASP2010011932

PATIENT
  Age: 71 Year
  Sex: Female
  Weight: 75 kg

DRUGS (8)
  1. NPLATE [Suspect]
     Indication: IDIOPATHIC THROMBOCYTOPENIC PURPURA
     Dosage: 750 A?G, QWK
     Route: 058
     Dates: start: 20100317
  2. CALCIUM +VIT D [Concomitant]
     Indication: PRODUCT USED FOR UNKNOWN INDICATION
     Dosage: UNK
     Route: 048
     Dates: start: 20101001
  3. PROTONIX [Concomitant]
     Indication: PRODUCT USED FOR UNKNOWN INDICATION
     Dosage: 40 MG, QD
  4. LISINOPRIL [Concomitant]
     Indication: PRODUCT USED FOR UNKNOWN INDICATION
     Dosage: 20 MG, QD
     Route: 048
     Dates: start: 20090701
  5. CYCLOSPORINE [Concomitant]
     Indication: IDIOPATHIC THROMBOCYTOPENIC PURPURA
     Dosage: 125 MG, BID
     Route: 048
     Dates: start: 20101117, end: 20101218
  6. LANTUS [Concomitant]
     Indication: PRODUCT USED FOR UNKNOWN INDICATION
     Dosage: 20 ML, QD
     Route: 058
  7. DANAZOL [Concomitant]
     Indication: IDIOPATHIC THROMBOCYTOPENIC PURPURA
     Dosage: UNK
     Dates: start: 20010121
  8. NORVASC [Concomitant]
     Indication: PRODUCT USED FOR UNKNOWN INDICATION
     Dosage: UNK UNK, QD
     Route: 048

REACTIONS (11)
  - PARAESTHESIA [None]
  - THERAPEUTIC RESPONSE DECREASED [None]
  - INFUSION SITE HAEMORRHAGE [None]
  - MUCOSAL HAEMORRHAGE [None]
  - MELAENA [None]
  - EPISTAXIS [None]
  - HAEMORRHAGE INTRACRANIAL [None]
  - CONTUSION [None]
  - BONE MARROW DISORDER [None]
  - WHITE BLOOD CELL DISORDER [None]
  - THROMBOCYTOPENIA [None]
